FAERS Safety Report 7472243 (Version 10)
Quarter: 2014Q2

REPORT INFORMATION
  Report Type: Report from Study
  Country: FR (occurrence: FR)
  Receive Date: 20100714
  Receipt Date: 20140508
  Transmission Date: 20141212
  Serious: Yes (Hospitalization, Other)
  Sender: FDA-Public Use
  Company Number: FR-BIOGENIDEC-2010BI019683

PATIENT
  Age: 28 Year
  Sex: Female

DRUGS (4)
  1. TYSABRI [Suspect]
     Indication: MULTIPLE SCLEROSIS
     Route: 042
     Dates: start: 20080129, end: 20100510
  2. KEPPRA [Concomitant]
  3. KEPPRA [Concomitant]
  4. MELIANE [Concomitant]
     Indication: ORAL CONTRACEPTION

REACTIONS (2)
  - Atypical mycobacterial infection [Not Recovered/Not Resolved]
  - Aspergilloma [Recovered/Resolved]
